FAERS Safety Report 17285146 (Version 1)
Quarter: 2020Q1

REPORT INFORMATION
  Report Type: Spontaneous
  Country: US (occurrence: US)
  Receive Date: 20200117
  Receipt Date: 20200117
  Transmission Date: 20200409
  Serious: No
  Sender: FDA-Public Use
  Company Number: US-BAUSCH-BL-2019-065821

PATIENT
  Age: 87 Year
  Sex: Male
  Weight: 81.72 kg

DRUGS (36)
  1. BETAMOL [Concomitant]
     Active Substance: TIMOLOL
     Indication: PRODUCT USED FOR UNKNOWN INDICATION
     Dosage: BOTH EYES
  2. BETAMOL [Concomitant]
     Active Substance: TIMOLOL
     Dosage: BOTH EYES
  3. MIRALAX [Suspect]
     Active Substance: POLYETHYLENE GLYCOL 3350
     Indication: PRODUCT USED FOR UNKNOWN INDICATION
     Dosage: TAKEN ON THE FIRST NIGHT ON 17/DEC/2019
     Route: 065
  4. PHILLIPS COLON HEALTH [Concomitant]
     Indication: COLITIS
     Dosage: IN THE MORNING
  5. FINASTERIDE. [Concomitant]
     Active Substance: FINASTERIDE
     Indication: MALE REPRODUCTIVE TRACT DISORDER
     Dosage: AT BEDTIME, PROSCAR SUBSTITUTE
  6. ENTERIC ASPIRIN [Concomitant]
     Active Substance: ASPIRIN
     Indication: PRODUCT USED FOR UNKNOWN INDICATION
     Dosage: AT BEDTIME
  7. LEVOCETIRIZINE [Concomitant]
     Active Substance: LEVOCETIRIZINE
     Indication: PRODUCT USED FOR UNKNOWN INDICATION
     Dosage: AT BEDTIME
  8. APRISO [Concomitant]
     Active Substance: MESALAMINE
     Indication: COLITIS
     Dosage: IN THE MORNING
  9. LORAZEPAM. [Concomitant]
     Active Substance: LORAZEPAM
     Indication: COLITIS
     Dosage: AT NIGHT
  10. ZENPEP [Concomitant]
     Active Substance: PANCRELIPASE AMYLASE\PANCRELIPASE LIPASE\PANCRELIPASE PROTEASE
     Indication: SUPPLEMENTATION THERAPY
     Dosage: WITH EVERY MEAL
  11. VALACYCLOVIR [Concomitant]
     Active Substance: VALACYCLOVIR HYDROCHLORIDE
     Indication: EYE INFECTION VIRAL
     Dosage: AT BEDTIME
  12. DESONIDE. [Concomitant]
     Active Substance: DESONIDE
     Indication: SEBORRHOEIC DERMATITIS
     Dosage: AS NEEDED
  13. AZOPT [Concomitant]
     Active Substance: BRINZOLAMIDE
     Indication: PRODUCT USED FOR UNKNOWN INDICATION
     Dosage: BOTH EYES
  14. SYSTANE (POLYETHYLENE GLYCOL 400\PROPYLENE GLYCOL) [Concomitant]
     Active Substance: POLYETHYLENE GLYCOL 400\PROPYLENE GLYCOL
     Indication: PRODUCT USED FOR UNKNOWN INDICATION
     Dosage: AS NEEDED (NON-PRESERVATIVE AMPOULES)
  15. KETOCONAZOLE. [Concomitant]
     Active Substance: KETOCONAZOLE
     Indication: COLITIS
     Dosage: 2 TWICE A DAY SCALING AREAS OF FACE FOR 3 WEEKS AND SKIP 1
  16. MAGNESIUM [Concomitant]
     Active Substance: MAGNESIUM
     Indication: MUSCLE TWITCHING
     Dosage: IN THE MORNING
  17. RAPAFLO [Concomitant]
     Active Substance: SILODOSIN
     Indication: MALE REPRODUCTIVE TRACT DISORDER
     Dosage: AT BEDTIME
  18. KETOCONAZOLE. [Concomitant]
     Active Substance: KETOCONAZOLE
     Indication: SKIN EXFOLIATION
  19. CLOBETASOL [Concomitant]
     Active Substance: CLOBETASOL
     Indication: RASH
     Dosage: 3 WEEKS/MONTH
  20. ALPHAGAN P [Concomitant]
     Active Substance: BRIMONIDINE TARTRATE
     Indication: PRODUCT USED FOR UNKNOWN INDICATION
     Dosage: BOTH EYES, EARLY
  21. FUROSEMIDE. [Concomitant]
     Active Substance: FUROSEMIDE
     Indication: COLITIS
     Dosage: IN THE MORNING
  22. NYSTATIN AND TRIAMCINOLONE ACETONIDE [Concomitant]
     Active Substance: NYSTATIN\TRIAMCINOLONE ACETONIDE
     Indication: PROCTALGIA
     Dosage: AS NEEDED
  23. FML [Concomitant]
     Active Substance: FLUOROMETHOLONE
     Indication: PRODUCT USED FOR UNKNOWN INDICATION
     Dosage: EACH EYE
  24. PRILOSEC [Concomitant]
     Active Substance: OMEPRAZOLE MAGNESIUM
     Indication: PRODUCT USED FOR UNKNOWN INDICATION
     Dosage: (IN LIEU OF NEXIUM), IN THE MORNING
  25. LINZESS [Concomitant]
     Active Substance: LINACLOTIDE
     Indication: COLITIS
     Dosage: AS NEEDED IN THE MORNING
  26. POTASSIUM [Concomitant]
     Active Substance: POTASSIUM
     Indication: PRODUCT USED FOR UNKNOWN INDICATION
     Dosage: IN THE MORNING
  27. VITAMIN C [Concomitant]
     Active Substance: ASCORBIC ACID
     Indication: PRODUCT USED FOR UNKNOWN INDICATION
     Dosage: IN THE MORNING
  28. TRIBULUS [Concomitant]
     Indication: HORMONE REPLACEMENT THERAPY
     Dosage: IN THE MORNING
  29. FIBERWISE [Concomitant]
     Indication: PRODUCT USED FOR UNKNOWN INDICATION
     Dosage: 1 DOSE
  30. FIBERWISE [Concomitant]
     Dosage: (IN LIEU OF NEXIUM), IN THE MORNING
  31. MELATONIN [Concomitant]
     Active Substance: MELATONIN
     Indication: PRODUCT USED FOR UNKNOWN INDICATION
     Dosage: AT BEDTIME
  32. HYDROCORTISONE. [Concomitant]
     Active Substance: HYDROCORTISONE
     Indication: SEBORRHOEIC DERMATITIS
     Dosage: AS NEEDED
  33. TRUSOPT [Concomitant]
     Active Substance: DORZOLAMIDE HYDROCHLORIDE
     Indication: PRODUCT USED FOR UNKNOWN INDICATION
     Dosage: BOTH EYES
  34. TRULANCE [Suspect]
     Active Substance: PLECANATIDE
     Indication: IRRITABLE BOWEL SYNDROME
     Route: 048
     Dates: start: 20191216
  35. CALCIUM [Concomitant]
     Active Substance: CALCIUM
     Indication: PRODUCT USED FOR UNKNOWN INDICATION
     Dosage: IN THE MORNING
  36. XALATAN [Concomitant]
     Active Substance: LATANOPROST
     Indication: PRODUCT USED FOR UNKNOWN INDICATION
     Dosage: LEFT EYE, AT BEDTIME, REFRIGERATED

REACTIONS (5)
  - Product packaging difficult to open [Unknown]
  - Diarrhoea [Not Recovered/Not Resolved]
  - Frequent bowel movements [Not Recovered/Not Resolved]
  - Fatigue [Unknown]
  - Product design issue [Unknown]

NARRATIVE: CASE EVENT DATE: 201912
